FAERS Safety Report 8882870 (Version 3)
Quarter: 2016Q4

REPORT INFORMATION
  Report Type: Spontaneous
  Country: KR (occurrence: KR)
  Receive Date: 20121105
  Receipt Date: 20161101
  Transmission Date: 20170207
  Serious: Yes (Other)
  Sender: FDA-Public Use
  Company Number: KR-JNJFOC-20121016606

PATIENT

DRUGS (2)
  1. INFLIXIMAB, RECOMBINANT [Suspect]
     Active Substance: INFLIXIMAB
     Indication: CROHN^S DISEASE
     Dosage: ON WEEK 0, 2, 6 AND THEN EVERY 8 WEEKS THEREAFTER
     Route: 042
  2. INFLIXIMAB, RECOMBINANT [Suspect]
     Active Substance: INFLIXIMAB
     Indication: CROHN^S DISEASE
     Dosage: ON WEEK 0, 2, 6 AND THEN EVERY 8 WEEKS THEREAFTER
     Route: 042

REACTIONS (10)
  - Therapeutic response decreased [Unknown]
  - Pulmonary tuberculosis [Recovered/Resolved]
  - Pancreatitis necrotising [Unknown]
  - Abdominal abscess [Unknown]
  - Serum sickness-like reaction [Unknown]
  - Tuberculosis [Unknown]
  - Infection [Unknown]
  - Chronic hepatitis B [Recovering/Resolving]
  - Infusion related reaction [Unknown]
  - Serum sickness [Unknown]
